FAERS Safety Report 22974956 (Version 14)
Quarter: 2025Q2

REPORT INFORMATION
  Report Type: Report from Study
  Country: US (occurrence: US)
  Receive Date: 20230923
  Receipt Date: 20250607
  Transmission Date: 20250717
  Serious: Yes (Hospitalization, Other)
  Sender: TAKEDA
  Company Number: US-TAKEDA-2020TUS013896

PATIENT
  Sex: Male
  Weight: 82 kg

DRUGS (29)
  1. PONATINIB [Suspect]
     Active Substance: PONATINIB
     Indication: Chronic myeloid leukaemia recurrent
  2. PONATINIB [Suspect]
     Active Substance: PONATINIB
     Dosage: 15 MILLIGRAM, QOD
  3. PONATINIB [Suspect]
     Active Substance: PONATINIB
     Dosage: 15 MILLIGRAM, QD
     Dates: start: 20181004
  4. PONATINIB [Suspect]
     Active Substance: PONATINIB
     Dosage: 15 MILLIGRAM, QOD
     Dates: start: 20230418
  5. PONATINIB [Suspect]
     Active Substance: PONATINIB
     Dosage: 15 MILLIGRAM, QD
  6. PONATINIB [Suspect]
     Active Substance: PONATINIB
     Dosage: 15 MILLIGRAM, QOD
  7. PONATINIB [Suspect]
     Active Substance: PONATINIB
     Dosage: 15 MILLIGRAM, QOD
  8. PONATINIB [Suspect]
     Active Substance: PONATINIB
     Dosage: 15 MILLIGRAM, QOD
  9. PONATINIB [Suspect]
     Active Substance: PONATINIB
     Dosage: 15 MILLIGRAM, QOD
  10. PONATINIB [Suspect]
     Active Substance: PONATINIB
     Dosage: 15 MILLIGRAM, QOD
  11. PONATINIB [Suspect]
     Active Substance: PONATINIB
     Dosage: 15 MILLIGRAM, QOD
  12. MIRALAX [Concomitant]
     Active Substance: POLYETHYLENE GLYCOL 3350
  13. SENNA [Concomitant]
     Active Substance: SENNOSIDES
  14. LEVOTHYROXINE SODIUM [Concomitant]
     Active Substance: LEVOTHYROXINE SODIUM
     Dosage: 0.75 MILLIGRAM, QD
  15. LISINOPRIL [Concomitant]
     Active Substance: LISINOPRIL
     Indication: Chronic myeloid leukaemia
     Dosage: 5 MILLIGRAM, QOD
  16. CRESTOR [Concomitant]
     Active Substance: ROSUVASTATIN CALCIUM
     Dosage: 10 MILLIGRAM, QD
  17. PROPRANOLOL HYDROCHLORIDE [Concomitant]
     Active Substance: PROPRANOLOL HYDROCHLORIDE
     Dosage: 40 MILLIGRAM, BID
  18. FLOMAX [Concomitant]
     Active Substance: TAMSULOSIN HYDROCHLORIDE
  19. VALIUM [Concomitant]
     Active Substance: DIAZEPAM
     Indication: Anxiety
  20. TRAZODONE HCL [Concomitant]
     Active Substance: TRAZODONE HYDROCHLORIDE
  21. TYLENOL EXTRA STRENGTH [Concomitant]
     Active Substance: ACETAMINOPHEN
  22. MOTRIN [Concomitant]
     Active Substance: IBUPROFEN
  23. BENTYL [Concomitant]
     Active Substance: DICYCLOMINE HYDROCHLORIDE
  24. TAMSULOSIN [Concomitant]
     Active Substance: TAMSULOSIN
     Indication: Benign prostatic hyperplasia
     Dosage: 0.4 MILLIGRAM, BID
  25. SODIUM CHLORIDE [Concomitant]
     Active Substance: SODIUM CHLORIDE
  26. STOOL SOFTENER (DOCUSATE) [Concomitant]
     Active Substance: DOCUSATE
  27. DEMECLOCYCLINE HYDROCHLORIDE [Concomitant]
     Active Substance: DEMECLOCYCLINE HYDROCHLORIDE
  28. EFFEXOR [Concomitant]
     Active Substance: VENLAFAXINE HYDROCHLORIDE
  29. FINASTERIDE [Concomitant]
     Active Substance: FINASTERIDE

REACTIONS (15)
  - Meningioma [Not Recovered/Not Resolved]
  - Hyponatraemia [Unknown]
  - Pancreatitis [Recovering/Resolving]
  - Blood pressure increased [Unknown]
  - Malaise [Unknown]
  - Hepatic enzyme increased [Unknown]
  - Product use issue [Unknown]
  - Off label use [Unknown]
  - Product dose omission issue [Unknown]
  - Illness [Unknown]
  - Cardiac disorder [Unknown]
  - Hypophagia [Unknown]
  - Psychiatric symptom [Unknown]
  - Anxiety [Unknown]
  - Pain [Unknown]

NARRATIVE: CASE EVENT DATE: 20180101
